FAERS Safety Report 5684285-X (Version None)
Quarter: 2008Q1

REPORT INFORMATION
  Report Type: 
  Country: None (occurrence: None)
  Receive Date: 20080328
  Receipt Date: 20080327
  Transmission Date: 20080703
  Serious: Yes (Disabling)
  Sender: FDA-Public Use
  Company Number: A0717834A

PATIENT
  Age: 23 Year
  Sex: Female
  Weight: 109 kg

DRUGS (1)
  1. ALLI [Suspect]
     Route: 048
     Dates: start: 20080101

REACTIONS (4)
  - ANAL HAEMORRHAGE [None]
  - GASTROINTESTINAL HAEMORRHAGE [None]
  - INFLUENZA [None]
  - MALAISE [None]
